FAERS Safety Report 16002581 (Version 3)
Quarter: 2019Q1

REPORT INFORMATION
  Report Type: Spontaneous
  Country: US (occurrence: US)
  Receive Date: 20190225
  Receipt Date: 20190304
  Transmission Date: 20190418
  Serious: No
  Sender: FDA-Public Use
  Company Number: US-SA-2019SA044676

PATIENT
  Age: 55 Year
  Sex: Male

DRUGS (2)
  1. TOUJEO [Suspect]
     Active Substance: INSULIN GLARGINE
     Indication: TYPE 2 DIABETES MELLITUS
     Dosage: 42-43 UNITS, QD
     Dates: start: 2018
  2. NOVOLOG [Concomitant]
     Active Substance: INSULIN ASPART
     Dosage: 12 U

REACTIONS (3)
  - Blood glucose increased [Unknown]
  - Product administration error [Unknown]
  - Blood glucose decreased [Unknown]
